FAERS Safety Report 25406899 (Version 1)
Quarter: 2025Q2

REPORT INFORMATION
  Report Type: Spontaneous
  Country: US (occurrence: None)
  Receive Date: 20250606
  Receipt Date: 20250606
  Transmission Date: 20250716
  Serious: Yes (Other)
  Sender: FDA-CTU
  Company Number: None

PATIENT
  Age: 36 Year
  Sex: Female

DRUGS (10)
  1. COPAXONE [Suspect]
     Active Substance: GLATIRAMER ACETATE
     Indication: Multiple sclerosis
     Dates: start: 2022
  2. VITAMINS [Concomitant]
     Active Substance: VITAMINS
  3. ALBUTEROL [Concomitant]
     Active Substance: ALBUTEROL
  4. FLUOXETINE [Concomitant]
     Active Substance: FLUOXETINE HYDROCHLORIDE
  5. BUPROPION [Concomitant]
     Active Substance: BUPROPION
  6. DIETARY SUPPLEMENT [Concomitant]
     Active Substance: DIETARY SUPPLEMENT
  7. ASPIRIN [Suspect]
     Active Substance: ASPIRIN
  8. LAMICTAL [Concomitant]
     Active Substance: LAMOTRIGINE
  9. VITAMIN D [Concomitant]
     Active Substance: VITAMIN D NOS
  10. FOLIC ACID [Concomitant]
     Active Substance: FOLIC ACID

REACTIONS (3)
  - Caesarean section [None]
  - Premature baby [None]
  - Maternal exposure during pregnancy [None]

NARRATIVE: CASE EVENT DATE: 20250412
